FAERS Safety Report 21772953 (Version 1)
Quarter: 2022Q4

REPORT INFORMATION
  Report Type: Spontaneous
  Country: US (occurrence: None)
  Receive Date: 20221222
  Receipt Date: 20221222
  Transmission Date: 20230112
  Serious: Yes (Hospitalization)
  Sender: FDA-Public Use
  Company Number: None

PATIENT
  Age: 66 Year
  Sex: Male

DRUGS (1)
  1. ABIRATERONE ACETATE [Suspect]
     Active Substance: ABIRATERONE ACETATE
     Indication: Prostate cancer
     Dosage: 250MG ONCE DAILY ORAL
     Route: 048
     Dates: start: 20210412

REACTIONS (3)
  - Chest pain [None]
  - Therapy interrupted [None]
  - Adverse drug reaction [None]

NARRATIVE: CASE EVENT DATE: 20221126
